FAERS Safety Report 6521064-5 (Version None)
Quarter: 2009Q4

REPORT INFORMATION
  Report Type: 
  Country: None (occurrence: None)
  Receive Date: 20091229
  Receipt Date: 20091218
  Transmission Date: 20100525
  Serious: Yes (Hospitalization)
  Sender: FDA-Public Use
  Company Number: NZ-ELI_LILLY_AND_COMPANY-NZ200912004098

PATIENT
  Age: 22 Year
  Sex: Male

DRUGS (3)
  1. ZYPREXA [Suspect]
     Dosage: 20 MG, UNKNOWN
     Route: 065
  2. ZYPREXA [Suspect]
     Dosage: 60 MG, UNKNOWN
     Route: 065
     Dates: start: 20090101, end: 20090101
  3. ZYPREXA [Suspect]
     Dosage: 20 MG, UNKNOWN
     Route: 065
     Dates: start: 20090101

REACTIONS (3)
  - INTENTIONAL OVERDOSE [None]
  - MALAISE [None]
  - SUICIDE ATTEMPT [None]
